FAERS Safety Report 12407336 (Version 2)
Quarter: 2016Q2

REPORT INFORMATION
  Report Type: Spontaneous
  Country: US (occurrence: US)
  Receive Date: 20160526
  Receipt Date: 20160613
  Transmission Date: 20160815
  Serious: No
  Sender: FDA-Public Use
  Company Number: US-PFIZER INC-2016272685

PATIENT
  Age: 94 Year
  Sex: Female
  Weight: 37 kg

DRUGS (1)
  1. DOXYCYCLINE MONOHYDRATE [Suspect]
     Active Substance: DOXYCYCLINE
     Dosage: 200 MG, 2X/DAY

REACTIONS (2)
  - Decreased appetite [Unknown]
  - Drug prescribing error [Unknown]
